FAERS Safety Report 6243707-6 (Version None)
Quarter: 2009Q2

REPORT INFORMATION
  Report Type: 
  Country: None (occurrence: None)
  Receive Date: 20090618
  Receipt Date: 20081001
  Transmission Date: 20091009
  Serious: Yes (Hospitalization)
  Sender: FDA-Public Use
  Company Number: WAES 0810USA00211

PATIENT
  Age: 56 Year
  Sex: Male

DRUGS (7)
  1. COZAAR [Suspect]
     Indication: HYPERTENSION
     Dosage: 50 MG/DAILY/PO; 50 MG/DAILY/PO
     Route: 048
     Dates: start: 20040101, end: 20070915
  2. COZAAR [Suspect]
     Indication: HYPERTENSION
     Dosage: 50 MG/DAILY/PO; 50 MG/DAILY/PO
     Route: 048
     Dates: start: 20080401
  3. ZOCOR [Suspect]
     Dosage: PO
     Route: 048
     Dates: start: 20070915, end: 20080917
  4. [THERAPY UNSPECIFIED] [Suspect]
  5. VITAMIN B50 [Concomitant]
  6. ASPIRIN [Concomitant]
  7. VITAMIN B COMPLEX CAP [Concomitant]

REACTIONS (16)
  - DIZZINESS [None]
  - DRUG INEFFECTIVE [None]
  - HALLUCINATION, AUDITORY [None]
  - HEADACHE [None]
  - HYPERTENSION [None]
  - INSOMNIA [None]
  - NECK PAIN [None]
  - OSCILLOPSIA [None]
  - PALPITATIONS [None]
  - PHOTOSENSITIVITY REACTION [None]
  - RASH [None]
  - SWEATING FEVER [None]
  - TRANSIENT ISCHAEMIC ATTACK [None]
  - TREMOR [None]
  - VERTIGO [None]
  - VOMITING [None]
